FAERS Safety Report 8050951-4 (Version None)
Quarter: 2012Q1

REPORT INFORMATION
  Report Type: 
  Country: None (occurrence: None)
  Receive Date: 20120117
  Receipt Date: 20120110
  Transmission Date: 20120608
  Serious: Yes (Other)
  Sender: FDA-Public Use
  Company Number: PHHY2012CH003133

PATIENT
  Age: 74 Year
  Sex: Male

DRUGS (1)
  1. LAMISIL [Suspect]
     Dosage: UNK UKN, UNK
     Dates: start: 19930101

REACTIONS (2)
  - OSTEONECROSIS [None]
  - BONE MARROW NECROSIS [None]
